FAERS Safety Report 16245050 (Version 7)
Quarter: 2020Q4

REPORT INFORMATION
  Report Type: Spontaneous
  Country: US (occurrence: US)
  Receive Date: 20190426
  Receipt Date: 20201103
  Transmission Date: 20210113
  Serious: Yes (Death, Hospitalization)
  Sender: FDA-Public Use
  Company Number: US-CELGENEUS-USA-20190409522

PATIENT
  Age: 78 Year
  Sex: Male
  Weight: 58 kg

DRUGS (28)
  1. DECADRON [Concomitant]
     Active Substance: DEXAMETHASONE
     Indication: PREMEDICATION
     Dosage: 10 MILLIGRAM
     Route: 042
     Dates: start: 20190326
  2. APREPITANT. [Concomitant]
     Active Substance: APREPITANT
     Indication: CHEMOTHERAPY SIDE EFFECT PROPHYLAXIS
     Dosage: 130 MILLIGRAM
     Route: 041
     Dates: start: 20190320
  3. PANTOPRAZOLE [Concomitant]
     Active Substance: PANTOPRAZOLE
     Indication: GASTROOESOPHAGEAL REFLUX DISEASE
     Dosage: 40 MILLIGRAM
     Route: 048
     Dates: start: 20190211, end: 20190419
  4. SUCRALFATE. [Concomitant]
     Active Substance: SUCRALFATE
     Indication: GASTROOESOPHAGEAL REFLUX DISEASE
     Dosage: 3 GRAM
     Route: 048
     Dates: start: 20190211, end: 20190419
  5. NORMAL SALINE [Concomitant]
     Active Substance: SODIUM CHLORIDE
     Route: 042
     Dates: start: 20190508, end: 20190508
  6. ALEVE [Concomitant]
     Active Substance: NAPROXEN SODIUM
     Indication: CHEST PAIN
     Dosage: 220 MILLIGRAM
     Route: 048
     Dates: start: 20160630
  7. APREPITANT. [Concomitant]
     Active Substance: APREPITANT
     Route: 065
     Dates: start: 20190326
  8. NORMAL SALINE [Concomitant]
     Active Substance: SODIUM CHLORIDE
     Route: 042
     Dates: start: 20190505, end: 20190505
  9. CIPROFLOXACIN. [Concomitant]
     Active Substance: CIPROFLOXACIN
     Indication: NEUTROPENIA
     Dosage: 500 MILLIGRAM
     Route: 065
     Dates: start: 20190327, end: 20190402
  10. BENADRYL [Concomitant]
     Active Substance: DIPHENHYDRAMINE HYDROCHLORIDE
     Indication: NAUSEA
     Dosage: 25 MILLIGRAM
     Route: 042
     Dates: start: 20190326, end: 20190326
  11. ABRAXANE [Suspect]
     Active Substance: PACLITAXEL
     Dosage: 140 MILLIGRAM
     Route: 041
     Dates: start: 20190409, end: 20190409
  12. MEDI4736 (DURVALUMAB) [Suspect]
     Active Substance: DURVALUMAB
     Indication: NON-SMALL CELL LUNG CANCER STAGE IV
     Dosage: 1500 MILLIGRAM
     Route: 042
     Dates: start: 20190320, end: 20190320
  13. CARBOPLATIN. [Suspect]
     Active Substance: CARBOPLATIN
     Indication: NON-SMALL CELL LUNG CANCER STAGE IV
     Dosage: 520 MILLIGRAM
     Route: 042
     Dates: start: 20190320, end: 20190320
  14. OXYCONTIN [Concomitant]
     Active Substance: OXYCODONE HYDROCHLORIDE
     Indication: NON-CARDIAC CHEST PAIN
     Dosage: 10 MILLIGRAM
     Route: 048
     Dates: start: 20190227
  15. GRANISETRON [Concomitant]
     Active Substance: GRANISETRON
     Indication: PROPHYLAXIS OF NAUSEA AND VOMITING
     Dosage: 10 MILLIGRAM
     Route: 058
     Dates: start: 20190320
  16. NORMAL SALINE [Concomitant]
     Active Substance: SODIUM CHLORIDE
     Indication: DEHYDRATION
     Route: 042
     Dates: start: 20190326, end: 20190326
  17. NORMAL SALINE [Concomitant]
     Active Substance: SODIUM CHLORIDE
     Route: 042
     Dates: start: 20190403, end: 20190404
  18. NORMAL SALINE [Concomitant]
     Active Substance: SODIUM CHLORIDE
     Route: 042
     Dates: start: 20190428, end: 20190428
  19. COMPAZINE [Concomitant]
     Active Substance: PROCHLORPERAZINE MALEATE
     Indication: PROPHYLAXIS OF NAUSEA AND VOMITING
     Dosage: 10 MILLIGRAM
     Route: 048
     Dates: start: 20190320
  20. NORMAL SALINE [Concomitant]
     Active Substance: SODIUM CHLORIDE
     Route: 042
     Dates: start: 20190628, end: 20190628
  21. CIPROFLOXACIN. [Concomitant]
     Active Substance: CIPROFLOXACIN
     Dosage: 500 MILLIGRAM
     Route: 065
     Dates: start: 20190508, end: 20190515
  22. MEGACE [Concomitant]
     Active Substance: MEGESTROL ACETATE
     Indication: WEIGHT DECREASED
     Dosage: 10 MILLIGRAM
     Route: 048
     Dates: start: 20190312
  23. NORMAL SALINE [Concomitant]
     Active Substance: SODIUM CHLORIDE
     Route: 042
     Dates: start: 20190408, end: 20190408
  24. NORMAL SALINE [Concomitant]
     Active Substance: SODIUM CHLORIDE
     Route: 042
     Dates: start: 20190426, end: 20190426
  25. ABRAXANE [Suspect]
     Active Substance: PACLITAXEL
     Dosage: 140 MILLIGRAM
     Route: 042
     Dates: start: 20190430, end: 20190430
  26. ABRAXANE [Suspect]
     Active Substance: PACLITAXEL
     Indication: NON-SMALL CELL LUNG CANCER STAGE IV
     Dosage: 140 MILLIGRAM
     Route: 042
     Dates: start: 20190320, end: 20190320
  27. SINGULAIR [Concomitant]
     Active Substance: MONTELUKAST SODIUM
     Indication: PRODUCT USED FOR UNKNOWN INDICATION
     Dosage: 4 MILLIGRAM
     Route: 048
     Dates: start: 20181227
  28. BACTRIM [Concomitant]
     Active Substance: SULFAMETHOXAZOLE\TRIMETHOPRIM
     Indication: PRODUCT USED FOR UNKNOWN INDICATION
     Dosage: 1000 MILLIGRAM
     Route: 048
     Dates: start: 20190416

REACTIONS (3)
  - Non-small cell lung cancer [Fatal]
  - Neutropenia [Recovered/Resolved]
  - Anaemia [Recovered/Resolved]

NARRATIVE: CASE EVENT DATE: 20190408
